FAERS Safety Report 5672277-6 (Version None)
Quarter: 2008Q1

REPORT INFORMATION
  Report Type: 
  Country: None (occurrence: None)
  Receive Date: 20080319
  Receipt Date: 20080311
  Transmission Date: 20080703
  Serious: Yes (Hospitalization)
  Sender: FDA-Public Use
  Company Number: PHBS2008DE03393

PATIENT
  Age: 48 Year
  Sex: Female

DRUGS (4)
  1. CARBAMAZEPINE [Suspect]
     Indication: GRAND MAL CONVULSION
     Dosage: 1500 MG/DAY
  2. CARBAMAZEPINE [Suspect]
     Dosage: 750 MG/DAY
  3. PREGABALIN [Suspect]
     Dosage: 300 MG/DAY
  4. PREGABALIN [Suspect]
     Dosage: 150 MG/DAY

REACTIONS (4)
  - AMNESTIC DISORDER [None]
  - BRAIN INJURY [None]
  - GAMMA-GLUTAMYLTRANSFERASE INCREASED [None]
  - THROMBOCYTHAEMIA [None]
